FAERS Safety Report 18789159 (Version 1)
Quarter: 2021Q1

REPORT INFORMATION
  Report Type: Spontaneous
  Country: US (occurrence: US)
  Receive Date: 20210126
  Receipt Date: 20210126
  Transmission Date: 20210419
  Serious: Yes (Other)
  Sender: FDA-Public Use
  Company Number: None

PATIENT
  Age: 67 Year
  Sex: Male
  Weight: 60.75 kg

DRUGS (6)
  1. CALCIUM + D3 [Concomitant]
     Active Substance: CALCIUM\CHOLECALCIFEROL
  2. CHROMIUM PICOLINATE [Concomitant]
     Active Substance: CHROMIUM PICOLINATE
  3. FLUTICASONE PROPIONATE NASAL SPRAY, USP [Suspect]
     Active Substance: FLUTICASONE PROPIONATE
     Indication: SINUS CONGESTION
     Dosage: ?          QUANTITY:2 SPRAY(S);?
     Route: 055
     Dates: start: 20210110, end: 20210119
  4. DAILY MULTI?VITAMIN [Concomitant]
     Active Substance: VITAMINS
  5. GINSENG [Concomitant]
     Active Substance: ASIAN GINSENG
  6. GINKO BILOBA [Concomitant]
     Active Substance: GINKGO

REACTIONS (11)
  - Anxiety [None]
  - Restlessness [None]
  - Irritability [None]
  - Helplessness [None]
  - Feeling of despair [None]
  - Panic attack [None]
  - Disturbance in attention [None]
  - Product use complaint [None]
  - Heart rate increased [None]
  - Nervousness [None]
  - Insomnia [None]

NARRATIVE: CASE EVENT DATE: 20210110
